FAERS Safety Report 15325458 (Version 1)
Quarter: 2018Q3

REPORT INFORMATION
  Report Type: Spontaneous
  Country: US (occurrence: US)
  Receive Date: 20180822
  Receipt Date: 20180822
  Transmission Date: 20181010
  Serious: Yes (Hospitalization)
  Sender: FDA-Public Use
  Company Number: None

PATIENT
  Sex: Male

DRUGS (1)
  1. REPATHA [Suspect]
     Active Substance: EVOLOCUMAB
     Indication: TYPE IIA HYPERLIPIDAEMIA
     Route: 058
     Dates: start: 20171027

REACTIONS (7)
  - Influenza like illness [None]
  - Pain [None]
  - Dyspnoea [None]
  - Feeling abnormal [None]
  - Blood pressure increased [None]
  - Insomnia [None]
  - Sensory disturbance [None]
